FAERS Safety Report 5682507-2 (Version None)
Quarter: 2008Q1

REPORT INFORMATION
  Report Type: 
  Country: None (occurrence: None)
  Receive Date: 20080326
  Receipt Date: 20080326
  Transmission Date: 20080703
  Serious: Yes (Hospitalization)
  Sender: FDA-Public Use
  Company Number: None

PATIENT
  Age: 78 Year
  Sex: Female
  Weight: 77.6 kg

DRUGS (10)
  1. WARFARIN SODIUM [Suspect]
     Indication: ATRIAL FIBRILLATION
     Dosage: (DURATION: # OF YEARS)
  2. AMIODARONE HCL [Concomitant]
  3. LANTUS [Concomitant]
  4. LASIX [Concomitant]
  5. LIPITOR [Concomitant]
  6. LOPRESSOR [Concomitant]
  7. NORVASC [Concomitant]
  8. PRANDIN [Concomitant]
  9. PROTONIX [Concomitant]
  10. SYNTHROID [Concomitant]

REACTIONS (2)
  - INTERNATIONAL NORMALISED RATIO INCREASED [None]
  - VAGINAL HAEMORRHAGE [None]
